FAERS Safety Report 7828985-1 (Version None)
Quarter: 2011Q4

REPORT INFORMATION
  Report Type: 
  Country: None (occurrence: None)
  Receive Date: 20111020
  Receipt Date: 20111013
  Transmission Date: 20120403
  Serious: Yes (Other)
  Sender: FDA-Public Use
  Company Number: GB-BAYER-2011-100196

PATIENT
  Age: 22 Year
  Sex: Female

DRUGS (3)
  1. CANESTEN ORAL CAPSULE [Suspect]
     Indication: CANDIDIASIS
  2. CLOTRIMAZOLE [Suspect]
     Indication: CANDIDIASIS
  3. CLOTRIMAZOLE [Suspect]
     Indication: CANDIDIASIS
     Dosage: UNK
     Dates: start: 20111008

REACTIONS (4)
  - VAGINAL DISCHARGE [None]
  - VAGINAL HAEMORRHAGE [None]
  - DYSMENORRHOEA [None]
  - BACK PAIN [None]
